FAERS Safety Report 11860964 (Version 1)
Quarter: 2015Q4

REPORT INFORMATION
  Report Type: Spontaneous
  Country: US (occurrence: US)
  Receive Date: 20151222
  Receipt Date: 20151222
  Transmission Date: 20160305
  Serious: No
  Sender: FDA-Public Use
  Company Number: CHPA2015US015189

PATIENT
  Age: 92 Year
  Sex: Female

DRUGS (2)
  1. VOLTAREN [Suspect]
     Active Substance: DICLOFENAC SODIUM
     Indication: ARTHRALGIA
     Dosage: UNK
     Route: 061
     Dates: start: 201506
  2. VOLTAREN [Suspect]
     Active Substance: DICLOFENAC SODIUM
     Indication: JOINT STIFFNESS

REACTIONS (2)
  - Hypoaesthesia [Not Recovered/Not Resolved]
  - Product use issue [Unknown]

NARRATIVE: CASE EVENT DATE: 201506
